FAERS Safety Report 19520636 (Version 1)
Quarter: 2021Q3

REPORT INFORMATION
  Report Type: Spontaneous
  Country: IT (occurrence: IT)
  Receive Date: 20210712
  Receipt Date: 20210712
  Transmission Date: 20211014
  Serious: Yes (Hospitalization)
  Sender: FDA-Public Use
  Company Number: IT-MYLANLABS-2021M1041129

PATIENT
  Age: 71 Year
  Sex: Female

DRUGS (1)
  1. TRIAMCINOLONE [Suspect]
     Active Substance: TRIAMCINOLONE
     Indication: CUTANEOUS LEISHMANIASIS
     Dosage: UNK, FOR 3 WEEKS
     Route: 026

REACTIONS (3)
  - Disease progression [Recovered/Resolved]
  - Psychomotor hyperactivity [Recovered/Resolved]
  - Cutaneous leishmaniasis [Recovered/Resolved]
